FAERS Safety Report 8590112-3 (Version None)
Quarter: 2012Q3

REPORT INFORMATION
  Report Type: 
  Country: None (occurrence: None)
  Receive Date: 20120813
  Receipt Date: 19890414
  Transmission Date: 20120928
  Serious: Yes (Other)
  Sender: FDA-Public Use
  Company Number: US-ROCHE-1099850

PATIENT
  Sex: Male

DRUGS (3)
  1. NITROGLYCERIN [Concomitant]
     Route: 042
  2. ACTIVASE [Suspect]
     Indication: MYOCARDIAL INFARCTION
     Route: 042
     Dates: start: 19890317
  3. HEPARIN [Concomitant]

REACTIONS (3)
  - CHEST PAIN [None]
  - BRADYCARDIA [None]
  - VENTRICULAR ARRHYTHMIA [None]
